FAERS Safety Report 10218932 (Version 2)
Quarter: 2014Q2

REPORT INFORMATION
  Report Type: Spontaneous
  Country: US (occurrence: US)
  Receive Date: 20140605
  Receipt Date: 20140616
  Transmission Date: 20141212
  Serious: Yes (Hospitalization, Other)
  Sender: FDA-Public Use
  Company Number: US-BAXTER-2014BAX027763

PATIENT
  Sex: Male

DRUGS (16)
  1. DIANEAL LOW CALCIUM [Suspect]
     Indication: PERITONEAL DIALYSIS
     Route: 033
     Dates: start: 201403
  2. DIANEAL LOW CALCIUM [Suspect]
     Route: 033
     Dates: start: 20140506, end: 20140521
  3. DIANEAL LOW CALCIUM [Suspect]
     Route: 033
     Dates: start: 20140527, end: 20140527
  4. DIANEAL LOW CALCIUM [Suspect]
     Route: 033
  5. DIANEAL LOW CALCIUM [Suspect]
     Indication: PERITONEAL DIALYSIS
     Route: 033
     Dates: start: 201403
  6. DIANEAL LOW CALCIUM [Suspect]
     Route: 033
     Dates: start: 20140506, end: 20140521
  7. DIANEAL LOW CALCIUM [Suspect]
     Route: 033
     Dates: start: 20140527, end: 20140527
  8. DIANEAL LOW CALCIUM [Suspect]
     Route: 033
  9. DIANEAL LOW CALCIUM (ULTRABAG) [Suspect]
     Indication: PERITONEAL DIALYSIS
     Route: 033
     Dates: start: 201403
  10. DIANEAL LOW CALCIUM (ULTRABAG) [Suspect]
     Route: 033
     Dates: start: 20140506, end: 20140521
  11. DIANEAL LOW CALCIUM (ULTRABAG) [Suspect]
     Route: 033
     Dates: start: 20140527, end: 20140527
  12. DIANEAL LOW CALCIUM (ULTRABAG) [Suspect]
     Route: 033
  13. DIANEAL LOW CALCIUM (ULTRABAG) [Suspect]
     Indication: PERITONEAL DIALYSIS
     Route: 033
     Dates: start: 201403
  14. DIANEAL LOW CALCIUM (ULTRABAG) [Suspect]
     Route: 033
     Dates: start: 20140506, end: 20140521
  15. DIANEAL LOW CALCIUM (ULTRABAG) [Suspect]
     Route: 033
     Dates: start: 20140527, end: 20140527
  16. DIANEAL LOW CALCIUM (ULTRABAG) [Suspect]
     Route: 033

REACTIONS (3)
  - Hernia [Recovered/Resolved]
  - Gastrointestinal disorder [Unknown]
  - Abdominal distension [Not Recovered/Not Resolved]
